FAERS Safety Report 9269556 (Version 1)
Quarter: 2013Q2

REPORT INFORMATION
  Report Type: Spontaneous
  Country: US (occurrence: US)
  Receive Date: 20130503
  Receipt Date: 20130503
  Transmission Date: 20140414
  Serious: Yes (Hospitalization)
  Sender: FDA-Public Use
  Company Number: US-ELI_LILLY_AND_COMPANY-US201304008257

PATIENT
  Age: 63 Year
  Sex: Female

DRUGS (4)
  1. ZYPREXA [Suspect]
     Indication: PANIC ATTACK
     Dosage: 60 MG, TID
  2. ZYPREXA [Suspect]
     Dosage: 60 MG, BID
  3. LISINOPRIL [Concomitant]
     Indication: HYPERTENSION
  4. SYNTHROID [Concomitant]
     Indication: THYROID DISORDER

REACTIONS (6)
  - Catatonia [Recovered/Resolved]
  - Dyspnoea [Recovered/Resolved]
  - Oedema peripheral [Recovered/Resolved]
  - Dyskinesia [Unknown]
  - Prescribed overdose [Recovered/Resolved]
  - Off label use [Recovered/Resolved]
